FAERS Safety Report 9451101 (Version 3)
Quarter: 2013Q4

REPORT INFORMATION
  Report Type: Report from Study
  Country: US (occurrence: US)
  Receive Date: 20130809
  Receipt Date: 20131113
  Transmission Date: 20140711
  Serious: Yes (Hospitalization)
  Sender: FDA-Public Use
  Company Number: US-US-EMD SERONO, INC.-7228462

PATIENT
  Age: 47 Year
  Sex: Female
  Weight: 61 kg

DRUGS (3)
  1. REBIF [Suspect]
     Indication: PRODUCT USED FOR UNKNOWN INDICATION
     Route: 058
     Dates: start: 20080130
  2. ADDERALL [Concomitant]
     Indication: BLOOD PRESSURE ABNORMAL
  3. CLONIDINE [Concomitant]
     Indication: BLOOD PRESSURE ABNORMAL

REACTIONS (2)
  - Pancreatitis [Recovering/Resolving]
  - Cholelithiasis [Unknown]
